FAERS Safety Report 7422872-9 (Version None)
Quarter: 2011Q2

REPORT INFORMATION
  Report Type: 
  Country: None (occurrence: None)
  Receive Date: 20110419
  Receipt Date: 20110415
  Transmission Date: 20111010
  Serious: Yes (Death)
  Sender: FDA-Public Use
  Company Number: VE-PFIZER INC-2011083465

PATIENT
  Sex: Male

DRUGS (2)
  1. NORVASC [Concomitant]
  2. LIPITOR [Suspect]
     Dosage: UNK

REACTIONS (1)
  - DEATH [None]
